FAERS Safety Report 16980954 (Version 3)
Quarter: 2021Q2

REPORT INFORMATION
  Report Type: Spontaneous
  Country: US (occurrence: US)
  Receive Date: 20191031
  Receipt Date: 20210609
  Transmission Date: 20210716
  Serious: No
  Sender: FDA-Public Use
  Company Number: US-SA-2019SA296186

PATIENT
  Age: 51 Year
  Sex: Female

DRUGS (5)
  1. DUPIXENT [Suspect]
     Active Substance: DUPILUMAB
     Indication: DERMATITIS ATOPIC
     Dosage: 300 MG, QOW
     Route: 058
     Dates: start: 2019
  2. PROGESTERONE. [Concomitant]
     Active Substance: PROGESTERONE
  3. SYNTHROID [Concomitant]
     Active Substance: LEVOTHYROXINE SODIUM
  4. TESTOSTERONE. [Concomitant]
     Active Substance: TESTOSTERONE
  5. ESOMEPRAZOL MAGNESIO [Concomitant]

REACTIONS (3)
  - Rectal prolapse repair [Unknown]
  - Gastrointestinal surgery [Not Recovered/Not Resolved]
  - Dry eye [Unknown]
